FAERS Safety Report 5194964-9 (Version None)
Quarter: 2006Q4

REPORT INFORMATION
  Report Type: 
  Country: None (occurrence: None)
  Receive Date: 20061229
  Receipt Date: 20061004
  Transmission Date: 20070319
  Serious: Yes (Other)
  Sender: FDA-Public Use
  Company Number: US-BAYER-200614226BCC

PATIENT
  Sex: Female
  Weight: 54 kg

DRUGS (2)
  1. PHILLIPS LAXATIVE DIETARY SUPPLEMENT [Suspect]
     Indication: CONSTIPATION
     Dosage: TOTAL DAILY DOSE: 500 MG  UNIT DOSE: 500 MG
     Route: 048
  2. LISINOPRIL [Concomitant]

REACTIONS (1)
  - HAEMATOCHEZIA [None]
